FAERS Safety Report 9156308 (Version 1)
Quarter: 2013Q1

REPORT INFORMATION
  Report Type: Report from Study
  Country: BR (occurrence: BR)
  Receive Date: 20130312
  Receipt Date: 20130312
  Transmission Date: 20140127
  Serious: Yes (Other)
  Sender: FDA-Public Use
  Company Number: BR-AMGEN-BRACT2013016701

PATIENT
  Age: 29 Year
  Sex: Female
  Weight: 78 kg

DRUGS (13)
  1. ETANERCEPT [Suspect]
     Indication: RHEUMATOID ARTHRITIS
     Dosage: 50 MG, QWK
     Dates: start: 200910
  2. ETANERCEPT [Suspect]
     Dosage: UNK
  3. ETANERCEPT [Suspect]
     Dosage: 50 MG, QWK
     Route: 058
     Dates: end: 201212
  4. PREDNISONE [Concomitant]
     Indication: RHEUMATOID ARTHRITIS
     Dosage: UNK
     Dates: start: 2002
  5. RIVOTRIL [Concomitant]
     Indication: SLEEP DISORDER
     Dosage: 15 DROPS
     Dates: start: 2008
  6. OMEPRAZOL                          /00661201/ [Concomitant]
     Indication: ABDOMINAL PAIN UPPER
     Dosage: UNK
     Dates: start: 2007
  7. AMITRIPTYLINE HYDROCHLORIDE [Concomitant]
     Dosage: UNK
  8. BI-PROFENID [Concomitant]
     Indication: PAIN
     Dosage: UNK
  9. OXYCONTIN [Concomitant]
     Dosage: UNK
     Dates: start: 2006
  10. ARTROLIVE [Concomitant]
     Indication: HIP DISARTICULATION
     Dosage: UNK
     Dates: start: 201011
  11. DORFLEX [Concomitant]
     Indication: PAIN
     Dosage: UNK
     Dates: start: 2002
  12. PARACETAMOL [Concomitant]
     Indication: PAIN
     Dosage: UNK
     Dates: start: 2002
  13. HYDROCHLOROTHIAZIDE [Concomitant]
     Dosage: UNK
     Route: 048

REACTIONS (7)
  - Pulmonary fibrosis [Unknown]
  - Injection site pain [Recovered/Resolved]
  - Injection site erythema [Recovered/Resolved]
  - Injection site discolouration [Recovered/Resolved]
  - Injection site pruritus [Recovered/Resolved]
  - Injection site swelling [Recovered/Resolved]
  - Injection site warmth [Recovered/Resolved]
